FAERS Safety Report 16453757 (Version 1)
Quarter: 2019Q2

REPORT INFORMATION
  Report Type: Spontaneous
  Country: US (occurrence: US)
  Receive Date: 20190619
  Receipt Date: 20190619
  Transmission Date: 20190711
  Serious: Yes (Other)
  Sender: FDA-Public Use
  Company Number: US-ASTRAZENECA-2019SE72915

PATIENT
  Sex: Male

DRUGS (4)
  1. SEROQUEL [Suspect]
     Active Substance: QUETIAPINE FUMARATE
     Route: 048
  2. HALDOL DECANOATE [Suspect]
     Active Substance: HALOPERIDOL DECANOATE
     Dosage: 150.0MG UNKNOWN
     Route: 065
  3. OLANZAPINE. [Concomitant]
     Active Substance: OLANZAPINE
  4. FLUOXETINE [Concomitant]
     Active Substance: FLUOXETINE HYDROCHLORIDE

REACTIONS (7)
  - Anosognosia [Unknown]
  - Emotional distress [Unknown]
  - Major depression [Unknown]
  - Mania [Unknown]
  - Abnormal behaviour [Unknown]
  - Nightmare [Unknown]
  - Anxiety [Unknown]
